FAERS Safety Report 6230954-2 (Version None)
Quarter: 2009Q2

REPORT INFORMATION
  Report Type: 
  Country: None (occurrence: None)
  Receive Date: 20090616
  Receipt Date: 20090609
  Transmission Date: 20091009
  Serious: Yes (Other)
  Sender: FDA-Public Use
  Company Number: CY-JNJFOC-20080104391

PATIENT
  Sex: Female

DRUGS (1)
  1. RETIN-A [Suspect]
     Indication: ACNE
     Route: 061

REACTIONS (2)
  - ABORTION [None]
  - DRUG EXPOSURE DURING PREGNANCY [None]
